FAERS Safety Report 5941145-4 (Version None)
Quarter: 2008Q4

REPORT INFORMATION
  Report Type: 
  Country: None (occurrence: None)
  Receive Date: 20081104
  Receipt Date: 20081024
  Transmission Date: 20090506
  Serious: Yes (Hospitalization, Other)
  Sender: FDA-Public Use
  Company Number: AU-PFIZER INC-2008090070

PATIENT
  Age: 75 Year
  Sex: Female

DRUGS (4)
  1. TOLTERODINE TARTRATE [Suspect]
     Indication: URGE INCONTINENCE
     Route: 048
  2. GENITO URINARY SYSTEM AND SEX HORMONES [Concomitant]
  3. INDOMETHACIN [Concomitant]
  4. MORPHINE [Concomitant]

REACTIONS (3)
  - DRY MOUTH [None]
  - SHOULDER OPERATION [None]
  - URINARY INCONTINENCE [None]
